FAERS Safety Report 23526319 (Version 3)
Quarter: 2024Q4

REPORT INFORMATION
  Report Type: Spontaneous
  Country: CZ (occurrence: CZ)
  Receive Date: 20240215
  Receipt Date: 20241018
  Transmission Date: 20250115
  Serious: No
  Sender: ROCHE
  Company Number: CZ-ROCHE-3490301

PATIENT
  Age: 59 Year
  Sex: Male

DRUGS (12)
  1. RITUXIMAB [Suspect]
     Active Substance: RITUXIMAB
     Indication: Follicular lymphoma stage IV
     Dosage: PREVIOUSLY STARTED 2010 AND TERMINATED AUG/2013. AFTER TWO YEARS AGAIN STARTED FEB/2016
     Route: 065
  2. BENDAMUSTINE [Suspect]
     Active Substance: BENDAMUSTINE
     Indication: Follicular lymphoma stage IV
     Route: 065
     Dates: start: 201602
  3. OBINUTUZUMAB [Suspect]
     Active Substance: OBINUTUZUMAB
     Indication: Follicular lymphoma stage IV
     Route: 042
  4. DOXORUBICIN [Concomitant]
     Active Substance: DOXORUBICIN
  5. DOXORUBICIN [Concomitant]
     Active Substance: DOXORUBICIN
  6. VINCRISTINE [Concomitant]
     Active Substance: VINCRISTINE
  7. PREDNISONE [Concomitant]
     Active Substance: PREDNISONE
  8. LENALIDOMIDE [Concomitant]
     Active Substance: LENALIDOMIDE
  9. DEXAMETHASONE [Concomitant]
     Active Substance: DEXAMETHASONE
  10. OXALIPLATIN [Concomitant]
     Active Substance: OXALIPLATIN
  11. CYTARABINE [Concomitant]
     Active Substance: CYTARABINE
  12. CYTARABINE [Concomitant]
     Active Substance: CYTARABINE

REACTIONS (1)
  - Disease progression [Recovered/Resolved]
